FAERS Safety Report 8268031-1 (Version None)
Quarter: 2012Q2

REPORT INFORMATION
  Report Type: 
  Country: None (occurrence: None)
  Receive Date: 20120409
  Receipt Date: 20120402
  Transmission Date: 20120825
  Serious: Yes (Hospitalization)
  Sender: FDA-Public Use
  Company Number: US-AMGEN-USASP2012020895

PATIENT
  Age: 66 Year
  Sex: Female

DRUGS (1)
  1. ENBREL [Suspect]
     Indication: RHEUMATOID ARTHRITIS
     Dosage: 50 MG, QWK
     Dates: start: 20040301

REACTIONS (9)
  - DECREASED APPETITE [None]
  - NEPHROLITHIASIS [None]
  - ABDOMINAL DISTENSION [None]
  - DIARRHOEA [None]
  - GLAUCOMA [None]
  - NAUSEA [None]
  - FLATULENCE [None]
  - THERAPEUTIC RESPONSE DECREASED [None]
  - CATARACT [None]
